FAERS Safety Report 25139702 (Version 1)
Quarter: 2025Q1

REPORT INFORMATION
  Report Type: Spontaneous
  Country: GB (occurrence: GB)
  Receive Date: 20250331
  Receipt Date: 20250331
  Transmission Date: 20250409
  Serious: Yes (Life-Threatening, Hospitalization, Disabling)
  Sender: CHEPLAPHARM
  Company Number: GB-CHEPLA-2025003974

PATIENT
  Age: 32 Year

DRUGS (1)
  1. OLANZAPINE [Suspect]
     Active Substance: OLANZAPINE
     Indication: Schizophrenia
     Dosage: DAILY DOSE: 20 MILLIGRAM
     Dates: start: 1996

REACTIONS (18)
  - Type 2 diabetes mellitus [Unknown]
  - Myocardial infarction [Unknown]
  - Impaired gastric emptying [Unknown]
  - Nerve injury [Unknown]
  - Eye swelling [Unknown]
  - Eye haemorrhage [Unknown]
  - Visual impairment [Unknown]
  - Illness [Unknown]
  - Dysstasia [Unknown]
  - Gait disturbance [Unknown]
  - Disturbance in attention [Unknown]
  - Sleep disorder [Unknown]
  - Diarrhoea [Unknown]
  - Vomiting [Unknown]
  - Depressed mood [Unknown]
  - Suicidal ideation [Unknown]
  - Anxiety [Unknown]
  - Eating disorder [Unknown]

NARRATIVE: CASE EVENT DATE: 20060101
